FAERS Safety Report 20403423 (Version 1)
Quarter: 2022Q1

REPORT INFORMATION
  Report Type: Spontaneous
  Country: US (occurrence: US)
  Receive Date: 20220131
  Receipt Date: 20220131
  Transmission Date: 20220423
  Serious: Yes (Other)
  Sender: FDA-Public Use
  Company Number: US-NOVARTISPH-NVSC2022US014500

PATIENT
  Sex: Male

DRUGS (1)
  1. COSENTYX [Suspect]
     Active Substance: SECUKINUMAB
     Indication: Product used for unknown indication
     Dosage: 300 MG, QMO (USING COSENTYX FOR A YEAR)
     Route: 065

REACTIONS (5)
  - Parkinson^s disease [Unknown]
  - Injection site pain [Unknown]
  - Product leakage [Unknown]
  - Device defective [Unknown]
  - Incorrect dose administered [Unknown]
